FAERS Safety Report 24153713 (Version 1)
Quarter: 2024Q3

REPORT INFORMATION
  Report Type: Spontaneous
  Country: US (occurrence: US)
  Receive Date: 20240730
  Receipt Date: 20240730
  Transmission Date: 20241017
  Serious: Yes (Other)
  Sender: CMP PHARMA
  Company Number: US-CMP PHARMA-2024CMP00042

PATIENT
  Age: 18 Year
  Sex: Female

DRUGS (2)
  1. AMLODIPINE [Suspect]
     Active Substance: AMLODIPINE BESYLATE
     Dosage: 900 MG
     Route: 048
  2. ACETAMINOPHEN [Suspect]
     Active Substance: ACETAMINOPHEN
     Route: 048

REACTIONS (7)
  - Harlequin syndrome [Recovered/Resolved]
  - Cardiogenic shock [Recovered/Resolved]
  - Haemodynamic instability [Recovered/Resolved]
  - Vasoplegia syndrome [Recovered/Resolved]
  - Non-cardiogenic pulmonary oedema [Recovered/Resolved]
  - Hypoxia [Recovered/Resolved]
  - Overdose [Recovered/Resolved]
